FAERS Safety Report 17963292 (Version 1)
Quarter: 2020Q2

REPORT INFORMATION
  Report Type: Report from Study
  Country: None (occurrence: US)
  Receive Date: 20200630
  Receipt Date: 20200630
  Transmission Date: 20200714
  Serious: No
  Sender: FDA-Public Use
  Company Number: US-BIOVITRUM-2020US1301

PATIENT
  Sex: Male

DRUGS (1)
  1. KINERET [Suspect]
     Active Substance: ANAKINRA
     Indication: STILL^S DISEASE
     Route: 058

REACTIONS (31)
  - Myalgia [Unknown]
  - Brain natriuretic peptide [Unknown]
  - Red blood cell count decreased [Unknown]
  - Blood alkaline phosphatase increased [Unknown]
  - C-reactive protein increased [Unknown]
  - Haematocrit decreased [Unknown]
  - Off label use [Unknown]
  - White blood cell count increased [Unknown]
  - Bilirubin conjugated increased [Unknown]
  - Lymphocyte count decreased [Unknown]
  - Monocyte count decreased [Unknown]
  - Pyrexia [Unknown]
  - Blood glucose increased [Unknown]
  - Blood bilirubin increased [Unknown]
  - Red cell distribution width increased [Unknown]
  - Neutrophil count increased [Unknown]
  - Hepatosplenomegaly [Unknown]
  - Liver function test abnormal [Unknown]
  - Haemoglobin decreased [Unknown]
  - Anaemia [Unknown]
  - Red blood cell sedimentation rate increased [Unknown]
  - Rash [Unknown]
  - Aspartate aminotransferase increased [Unknown]
  - Serum ferritin increased [Unknown]
  - Blood albumin decreased [Unknown]
  - Oropharyngeal pain [Unknown]
  - Arthralgia [Unknown]
  - Blood sodium decreased [Unknown]
  - Alanine aminotransferase increased [Unknown]
  - Epstein-Barr virus antibody positive [Unknown]
  - Eosinophil count decreased [Unknown]
